FAERS Safety Report 16057824 (Version 1)
Quarter: 2019Q1

REPORT INFORMATION
  Report Type: Spontaneous
  Country: DE (occurrence: DE)
  Receive Date: 20190311
  Receipt Date: 20190311
  Transmission Date: 20190418
  Serious: Yes (Death, Life-Threatening)
  Sender: FDA-Public Use
  Company Number: DE-TEVA-2019-DE-1020930

PATIENT
  Age: 86 Year
  Sex: Female
  Weight: 80 kg

DRUGS (5)
  1. SERTRALIN [Suspect]
     Active Substance: SERTRALINE HYDROCHLORIDE
     Indication: DEPRESSION
     Dosage: 50 MILLIGRAM DAILY; DAILY DOSE: 50 MG MILLGRAM(S) EVERY DAYS
     Route: 048
     Dates: end: 20190201
  2. BISOPROLOL [Concomitant]
     Active Substance: BISOPROLOL
     Dosage: 5 MILLIGRAM DAILY; DAILY DOSE: 5 MG MILLGRAM(S) EVERY DAYS
     Route: 048
  3. OLICLINOMEL [Concomitant]
     Active Substance: AMINO ACIDS\DEXTROSE\ELECTROLYTES NOS\SOYBEAN OIL
     Indication: DIET REFUSAL
     Dosage: 2000 ML DAILY; DAILY DOSE: 2000 ML MILLILITRE(S) EVERY DAYS
     Route: 042
  4. PANTOPRAZOL [Concomitant]
     Active Substance: PANTOPRAZOLE SODIUM
     Indication: DECREASED APPETITE
     Dosage: DAILY DOSE: 80 MG MILLGRAM(S) EVERY HOURS
     Route: 048
     Dates: start: 20190125
  5. VANCOMYCIN [Concomitant]
     Active Substance: VANCOMYCIN
     Indication: GASTROENTERITIS CLOSTRIDIAL
     Dosage: 1000 MILLIGRAM DAILY; DAILY DOSE: 1000 MG MILLGRAM(S) EVERY DAYS
     Route: 048
     Dates: start: 20190205, end: 20190208

REACTIONS (3)
  - Thrombocytopenia [Fatal]
  - Leukopenia [Fatal]
  - Immune thrombocytopenic purpura [Fatal]

NARRATIVE: CASE EVENT DATE: 20190201
